FAERS Safety Report 16395503 (Version 2)
Quarter: 2019Q2

REPORT INFORMATION
  Report Type: Spontaneous
  Country: BE (occurrence: BE)
  Receive Date: 20190605
  Receipt Date: 20190625
  Transmission Date: 20190711
  Serious: Yes (Hospitalization, Other)
  Sender: FDA-Public Use
  Company Number: BE-PFIZER INC-2019235834

PATIENT
  Age: 68 Year
  Sex: Male

DRUGS (2)
  1. ENBREL [Suspect]
     Active Substance: ETANERCEPT
     Indication: PSORIATIC ARTHROPATHY
     Dosage: 50 MG, WEEKLY
     Route: 058
     Dates: start: 2000, end: 20190529
  2. LEDERTREXATE [Suspect]
     Active Substance: METHOTREXATE
     Indication: PSORIATIC ARTHROPATHY
     Dosage: 15 MG, WEEKLY
     Route: 048
     Dates: start: 2000

REACTIONS (11)
  - Ulcerative duodenitis [Unknown]
  - Pancreatic disorder [Unknown]
  - Cataract [Unknown]
  - Impaired healing [Unknown]
  - Off label use [Unknown]
  - Pain [Unknown]
  - Product use in unapproved indication [Unknown]
  - Neuroendocrine carcinoma of the skin [Recovered/Resolved]
  - Gallbladder disorder [Unknown]
  - Intervertebral disc protrusion [Unknown]
  - Radiation injury [Unknown]

NARRATIVE: CASE EVENT DATE: 2006
